FAERS Safety Report 6743499-8 (Version None)
Quarter: 2010Q2

REPORT INFORMATION
  Report Type: 
  Country: None (occurrence: None)
  Receive Date: 20100526
  Receipt Date: 20100526
  Transmission Date: 20101027
  Serious: Yes (Other)
  Sender: FDA-Public Use
  Company Number: None

PATIENT
  Sex: Male
  Weight: 78 kg

DRUGS (1)
  1. GAMMAGARD LIQUID [Suspect]
     Indication: IMMUNODEFICIENCY
     Dosage: 30GM Q 4 WEEKS IV
     Route: 042
     Dates: start: 20100514

REACTIONS (4)
  - INFUSION RELATED REACTION [None]
  - NASAL CONGESTION [None]
  - PRURITUS [None]
  - URTICARIA [None]
